FAERS Safety Report 10714117 (Version 2)
Quarter: 2015Q1

REPORT INFORMATION
  Report Type: Spontaneous
  Country: US (occurrence: US)
  Receive Date: 20150115
  Receipt Date: 20150220
  Transmission Date: 20150721
  Serious: Yes (Other)
  Sender: FDA-Public Use
  Company Number: US-PERRIGO-15US000069

PATIENT
  Age: 58 Year
  Sex: Male
  Weight: 104.31 kg

DRUGS (4)
  1. XARELTO [Concomitant]
     Active Substance: RIVAROXABAN
     Indication: ANTICOAGULANT THERAPY
     Dosage: UNK
     Route: 065
     Dates: start: 2012
  2. OXYMETAZOLINE HYDROCHLORIDE EXTRA MOIST 0.05% 065 [Suspect]
     Active Substance: OXYMETAZOLINE HYDROCHLORIDE
     Indication: NASAL CONGESTION
     Dosage: TWO SPRAYS, EACH NOSTRIL, SINGLE
     Route: 045
     Dates: start: 20150101, end: 20150101
  3. ATORVASTATIN [Concomitant]
     Active Substance: ATORVASTATIN
     Indication: BLOOD CHOLESTEROL INCREASED
     Dosage: UNK
     Route: 065
     Dates: start: 2009
  4. XARELTO [Concomitant]
     Active Substance: RIVAROXABAN
     Indication: PULMONARY EMBOLISM

REACTIONS (11)
  - Application site pain [Recovered/Resolved]
  - Dyspnoea [Recovered/Resolved]
  - Nausea [Recovered/Resolved]
  - Glassy eyes [Recovered/Resolved]
  - Disorientation [Recovered/Resolved]
  - Ocular hyperaemia [Unknown]
  - Asthenia [Recovered/Resolved]
  - Anosmia [Recovering/Resolving]
  - Lacrimation increased [Unknown]
  - Confusional state [Recovered/Resolved]
  - Coordination abnormal [Unknown]

NARRATIVE: CASE EVENT DATE: 20150101
